FAERS Safety Report 20219788 (Version 2)
Quarter: 2022Q1

REPORT INFORMATION
  Report Type: Spontaneous
  Country: US (occurrence: None)
  Receive Date: 20211222
  Receipt Date: 20220211
  Transmission Date: 20220423
  Serious: Yes (Other)
  Sender: FDA-Public Use
  Company Number: US-Merck Healthcare KGaA-9287357

PATIENT
  Sex: Male

DRUGS (1)
  1. BAVENCIO [Suspect]
     Active Substance: AVELUMAB
     Indication: Bladder cancer

REACTIONS (5)
  - Ureteric obstruction [Unknown]
  - Haematuria [Unknown]
  - Blood creatinine increased [Unknown]
  - Flank pain [Unknown]
  - Condition aggravated [Unknown]
